FAERS Safety Report 23665865 (Version 1)
Quarter: 2024Q1

REPORT INFORMATION
  Report Type: Spontaneous
  Country: CN (occurrence: CN)
  Receive Date: 20240323
  Receipt Date: 20240323
  Transmission Date: 20240409
  Serious: Yes (Other)
  Sender: FDA-Public Use
  Company Number: None

PATIENT
  Age: 53 Year
  Sex: Female
  Weight: 48 kg

DRUGS (4)
  1. SODIUM CHLORIDE [Suspect]
     Active Substance: SODIUM CHLORIDE
     Indication: Appendicitis
     Dosage: 100 ML (MILLILITRE), ONCE DAILY (DOSAGE FORM: INJECTION)
     Route: 041
     Dates: start: 20240308, end: 20240308
  2. SODIUM CHLORIDE [Suspect]
     Active Substance: SODIUM CHLORIDE
     Indication: Focal peritonitis
  3. CEFTIZOXIME SODIUM [Suspect]
     Active Substance: CEFTIZOXIME SODIUM
     Indication: Appendicitis
     Dosage: 2 G, ONCE DAILY (IVGTT) (TRADE NAME: YIBOSHILING)
     Route: 041
     Dates: start: 20240308, end: 20240308
  4. CEFTIZOXIME SODIUM [Suspect]
     Active Substance: CEFTIZOXIME SODIUM
     Indication: Focal peritonitis

REACTIONS (1)
  - Allergic cough [Recovering/Resolving]

NARRATIVE: CASE EVENT DATE: 20240308
